FAERS Safety Report 5833661-0 (Version None)
Quarter: 2008Q3

REPORT INFORMATION
  Report Type: 
  Country: None (occurrence: None)
  Receive Date: 20080805
  Receipt Date: 20080728
  Transmission Date: 20090109
  Serious: Yes (Disabling)
  Sender: FDA-Public Use
  Company Number: DE-ASTRAZENECA-2008PK01637

PATIENT
  Age: 77 Year
  Sex: Male
  Weight: 85 kg

DRUGS (4)
  1. ATACAND [Suspect]
     Route: 048
     Dates: start: 20080201
  2. BETASEMID [Concomitant]
     Route: 048
     Dates: start: 19880101
  3. AMLODIPINE [Concomitant]
     Route: 048
     Dates: start: 20070901
  4. ENALAPRIL MALEATE [Concomitant]
     Indication: HYPERTENSION
     Route: 048
     Dates: start: 20080101

REACTIONS (1)
  - DRUG ERUPTION [None]
